FAERS Safety Report 8884374 (Version 4)
Quarter: 2014Q2

REPORT INFORMATION
  Report Type: Report from Study
  Country: SE (occurrence: SE)
  Receive Date: 20121102
  Receipt Date: 20140620
  Transmission Date: 20141212
  Serious: Yes (Hospitalization)
  Sender: FDA-Public Use
  Company Number: SE-009507513-1210SWE013990

PATIENT
  Age: 93 Year
  Sex: Male
  Weight: 67 kg

DRUGS (22)
  1. EZETIMIBE (+) SIMVASTATIN [Suspect]
     Indication: ACUTE CORONARY SYNDROME
     Dosage: 10/40 MG
     Route: 048
     Dates: start: 20061216
  2. MACROGOL HEXAL [Concomitant]
     Dosage: UNK
     Route: 048
     Dates: start: 20091124
  3. KALCIPOS D [Concomitant]
     Dosage: 500 MG DAILY
     Route: 048
     Dates: start: 20100614
  4. FUROSEMIDE [Concomitant]
     Dosage: 40 MG DAILY
     Route: 048
     Dates: start: 20050903
  5. ISOSORBIDE MONONITRATE [Concomitant]
     Dosage: 120 MG DAILY
     Route: 048
     Dates: start: 20050903
  6. ACETAMINOPHEN [Concomitant]
     Dosage: 4 G DAILY
     Route: 048
     Dates: start: 20100612
  7. LEVOTHYROXINE SODIUM [Concomitant]
     Dosage: 125 MICROGRAM DAILY
     Route: 048
     Dates: start: 20050903
  8. CLOPIDOGREL [Concomitant]
     Dosage: 75 MG DAILY
     Route: 048
     Dates: start: 20061212
  9. LEVOCABASTINE HYDROCHLORIDE [Concomitant]
     Dosage: 0.5 MG/ML EYE DROPS
     Route: 047
     Dates: start: 20091125
  10. BUDESONIDE [Concomitant]
     Dosage: 400 MICROGRAM DAILY
     Route: 055
     Dates: start: 20120121
  11. HYDROXYZINE [Concomitant]
     Dosage: 25 MG DAILY
     Route: 048
     Dates: start: 20071211
  12. BISOPROLOL [Concomitant]
     Dosage: 7.5 MG DAILY
     Route: 048
     Dates: start: 20050903
  13. OMEPRAZOLE [Concomitant]
     Dosage: 20 MG DAILY
     Route: 048
     Dates: start: 20060413
  14. HUMALOG [Concomitant]
     Dosage: 22E DAILY
     Route: 058
     Dates: start: 20090131
  15. HUMALOG [Concomitant]
     Dosage: 14E INJECTION DAILY
     Dates: start: 20090209
  16. EMCONCOR [Concomitant]
     Dosage: 10 MG DAILY
     Route: 048
     Dates: start: 20050903
  17. ATARAX (ALPRAZOLAM) [Concomitant]
     Dosage: 25 MG DAILY
     Route: 048
     Dates: start: 20071111
  18. GLYTRIN [Concomitant]
     Dosage: 0.4MG/DOSE DAILY
     Route: 048
     Dates: start: 20070217
  19. FURIX [Concomitant]
     Dosage: 40 MG DAILY
     Route: 048
     Dates: start: 20050902
  20. DIGOXIN [Concomitant]
     Dosage: 0.13 MG DAILY
     Route: 048
     Dates: start: 20081107
  21. CANDESARTAN CILEXETIL [Concomitant]
     Dosage: 4 MG DAILY
     Route: 048
     Dates: start: 20080903
  22. TROMBYL [Concomitant]
     Dosage: 75 MG DAILY
     Route: 048
     Dates: start: 20060413

REACTIONS (2)
  - Lip squamous cell carcinoma [Not Recovered/Not Resolved]
  - Intervertebral disc compression [Recovered/Resolved]
